FAERS Safety Report 19490572 (Version 3)
Quarter: 2021Q3

REPORT INFORMATION
  Report Type: Spontaneous
  Country: US (occurrence: US)
  Receive Date: 20210705
  Receipt Date: 20210721
  Transmission Date: 20211014
  Serious: Yes (Other)
  Sender: FDA-Public Use
  Company Number: US-009507513-2106USA007350

PATIENT
  Age: 68 Year
  Sex: Female
  Weight: 86.17 kg

DRUGS (13)
  1. VANCOMYCIN [Concomitant]
     Active Substance: VANCOMYCIN
     Dosage: UNK
     Dates: end: 20210622
  2. ZESTRIL [Concomitant]
     Active Substance: LISINOPRIL
  3. ZOLOFT [Concomitant]
     Active Substance: SERTRALINE HYDROCHLORIDE
  4. NORVASC [Concomitant]
     Active Substance: AMLODIPINE BESYLATE
  5. QUESTRAN [Concomitant]
     Active Substance: CHOLESTYRAMINE
  6. ZINPLAVA [Suspect]
     Active Substance: BEZLOTOXUMAB
     Indication: CLOSTRIDIUM DIFFICILE INFECTION
     Dosage: 875 MG IV ONCE
     Route: 042
     Dates: start: 20210622, end: 20210622
  7. FOLIC ACID. [Concomitant]
     Active Substance: FOLIC ACID
  8. INSULINE DETEMIR [Concomitant]
  9. LOPRESSOR [Concomitant]
     Active Substance: METOPROLOL TARTRATE
  10. FLORASTOR [LACTOBACILLUS ACIDOPHILUS] [Concomitant]
  11. FERROUS SULFATE. [Concomitant]
     Active Substance: FERROUS SULFATE
  12. LASIX [Concomitant]
     Active Substance: FUROSEMIDE
  13. FLUNASE [FLUNISOLIDE] [Concomitant]

REACTIONS (7)
  - Chest pain [Recovered/Resolved]
  - Pain [Unknown]
  - Incorrect dose administered [Unknown]
  - Arthralgia [Recovered/Resolved]
  - Neck pain [Recovered/Resolved]
  - Product use in unapproved indication [Unknown]
  - Blood pressure abnormal [Unknown]

NARRATIVE: CASE EVENT DATE: 20210622
